FAERS Safety Report 5629896-2 (Version None)
Quarter: 2008Q1

REPORT INFORMATION
  Report Type: 
  Country: None (occurrence: None)
  Receive Date: 20080218
  Receipt Date: 20080130
  Transmission Date: 20080703
  Serious: Yes (Hospitalization)
  Sender: FDA-Public Use
  Company Number: 2008S1000423

PATIENT
  Age: 58 Year
  Sex: Male

DRUGS (5)
  1. PAROXETINE HCL [Suspect]
     Indication: ANXIETY
     Dosage: 20 MG;DAILY;ORAL
     Route: 048
     Dates: start: 20071121
  2. BENDROFLUMETHIAZIDE [Concomitant]
  3. LISINOPRIL [Concomitant]
  4. METOPROLOL TARTRATE [Concomitant]
  5. SIMVASTATIN [Concomitant]

REACTIONS (7)
  - ABNORMAL BEHAVIOUR [None]
  - CONSTIPATION [None]
  - DIZZINESS [None]
  - MEMORY IMPAIRMENT [None]
  - NAUSEA [None]
  - PARANOIA [None]
  - PERSONALITY CHANGE [None]
